FAERS Safety Report 8875421 (Version 9)
Quarter: 2013Q3

REPORT INFORMATION
  Report Type: Report from Study
  Country: US (occurrence: US)
  Receive Date: 20121029
  Receipt Date: 20130830
  Transmission Date: 20140515
  Serious: Yes (Hospitalization)
  Sender: FDA-Public Use
  Company Number: US-PFIZER INC-2012249211

PATIENT
  Age: 13 Year
  Sex: Female
  Weight: 53 kg

DRUGS (2)
  1. DESVENLAFAXINE SUCCINATE MONOHYDRATE [Suspect]
     Indication: MAJOR DEPRESSION
     Dosage: 25 MG, 1X/DAY IN THE MORNING
     Route: 048
     Dates: start: 20120917, end: 20121005
  2. NYQUIL [Concomitant]
     Indication: NASAL CONGESTION
     Dosage: 30 ML, AT TWO TABLESPOONFULS IN THE EVENING
     Route: 048
     Dates: start: 20121004, end: 20121004

REACTIONS (5)
  - Aggression [Recovered/Resolved]
  - Irritability [Recovered/Resolved]
  - Hallucination, auditory [Recovering/Resolving]
  - Elevated mood [Recovered/Resolved]
  - Insomnia [Recovered/Resolved]
